FAERS Safety Report 5602434-6 (Version None)
Quarter: 2008Q1

REPORT INFORMATION
  Report Type: 
  Country: None (occurrence: None)
  Receive Date: 20080122
  Receipt Date: 20080115
  Transmission Date: 20080703
  Serious: Yes (Hospitalization, Other)
  Sender: FDA-Public Use
  Company Number: 163-21880-06110641

PATIENT
  Age: 69 Year
  Sex: Female

DRUGS (2)
  1. REVLIMID [Suspect]
     Indication: MYELODYSPLASTIC SYNDROME
     Dosage: 10 MG, 1 IN 1 D, ORAL; 5 MG, 1 IN 1 D
     Route: 048
     Dates: start: 20060401
  2. THYROID MEDICATION (THYROID THERAPY) [Concomitant]

REACTIONS (3)
  - CHOLELITHIASIS [None]
  - DRUG EFFECT DECREASED [None]
  - RED BLOOD CELL COUNT DECREASED [None]
